FAERS Safety Report 4908192-2 (Version None)
Quarter: 2006Q1

REPORT INFORMATION
  Report Type: 
  Country: None (occurrence: None)
  Receive Date: 20060210
  Receipt Date: 20060131
  Transmission Date: 20060701
  Serious: Yes (Hospitalization)
  Sender: FDA-Public Use
  Company Number: FR-JNJFOC-20060200306

PATIENT
  Age: 71 Year
  Sex: Female
  Weight: 71 kg

DRUGS (13)
  1. HALDOL [Suspect]
     Indication: DELUSION
     Route: 048
  2. TOPALGIC [Suspect]
     Indication: DRUG USE FOR UNKNOWN INDICATION
     Route: 048
  3. XANAX [Suspect]
     Indication: DRUG USE FOR UNKNOWN INDICATION
     Route: 048
  4. TAREG [Suspect]
     Indication: DRUG USE FOR UNKNOWN INDICATION
     Route: 048
  5. ZOPICLONE [Suspect]
     Indication: DRUG USE FOR UNKNOWN INDICATION
     Route: 048
  6. PROTHIADEN [Suspect]
     Indication: DRUG USE FOR UNKNOWN INDICATION
     Route: 048
  7. TRIMEBUTINE [Concomitant]
  8. INIPOMP [Concomitant]
  9. CALPEROS D3 [Concomitant]
  10. CALPEROS D3 [Concomitant]
  11. SPAGULAX [Concomitant]
  12. VOLTARENE EMULGEL [Concomitant]
  13. EFFERALGAN [Concomitant]

REACTIONS (6)
  - ABDOMINAL PAIN [None]
  - AGGRESSION [None]
  - AGITATION [None]
  - DELIRIUM [None]
  - INSOMNIA [None]
  - SLUGGISHNESS [None]
